FAERS Safety Report 9967451 (Version 1)
Quarter: 2014Q1

REPORT INFORMATION
  Report Type: Spontaneous
  Country: US (occurrence: US)
  Receive Date: 20140305
  Receipt Date: 20140305
  Transmission Date: 20141002
  Serious: No
  Sender: FDA-Public Use
  Company Number: US-ABBVIE-13P-163-1137889-00

PATIENT
  Age: 48 Year
  Sex: Male

DRUGS (3)
  1. HUMIRA [Suspect]
     Indication: PRODUCT USED FOR UNKNOWN INDICATION
     Dosage: 160 MILLIGRAMS DAILY
     Route: 058
     Dates: start: 201307, end: 201307
  2. HUMIRA [Suspect]
     Route: 058
     Dates: start: 20130801, end: 20130801
  3. HUMIRA [Suspect]
     Route: 058
     Dates: start: 20130815

REACTIONS (1)
  - Inappropriate schedule of drug administration [Unknown]
